FAERS Safety Report 12540687 (Version 2)
Quarter: 2016Q4

REPORT INFORMATION
  Report Type: Spontaneous
  Country: US (occurrence: US)
  Receive Date: 20160708
  Receipt Date: 20161011
  Transmission Date: 20170207
  Serious: No
  Sender: FDA-Public Use
  Company Number: US-TEVA-654540USA

PATIENT
  Age: 51 Year
  Sex: Female
  Weight: 65.83 kg

DRUGS (1)
  1. ZECUITY [Suspect]
     Active Substance: SUMATRIPTAN SUCCINATE
     Indication: MIGRAINE
     Dosage: 6.5 MG OVEER 4 HOURS
     Route: 062
     Dates: start: 201604

REACTIONS (5)
  - Application site pain [Unknown]
  - Application site erythema [Unknown]
  - Inappropriate schedule of drug administration [Unknown]
  - Device battery issue [Unknown]
  - Device leakage [Unknown]

NARRATIVE: CASE EVENT DATE: 201604
